FAERS Safety Report 21265421 (Version 1)
Quarter: 2022Q3

REPORT INFORMATION
  Report Type: Report from Study
  Country: US (occurrence: US)
  Receive Date: 20220829
  Receipt Date: 20220829
  Transmission Date: 20221027
  Serious: No
  Sender: FDA-Public Use
  Company Number: US-BSC-2022000031

PATIENT
  Age: 62 Year
  Sex: Female

DRUGS (5)
  1. VARITHENA [Suspect]
     Active Substance: POLIDOCANOL
     Indication: Peripheral venous disease
     Dosage: 18 ML CANISTER. SERIALISATION NUMBER NDC6063501180
     Route: 042
     Dates: start: 20171208, end: 20171208
  2. ENALAPRIL [Concomitant]
     Active Substance: ENALAPRIL
     Indication: Hypertension
  3. DIAMOX SEQUELS [Concomitant]
     Active Substance: ACETAZOLAMIDE
     Indication: Product used for unknown indication
  4. ZOLOFT [Concomitant]
     Active Substance: SERTRALINE HYDROCHLORIDE
     Indication: Product used for unknown indication
  5. OMEPRAZOLE [Concomitant]
     Active Substance: OMEPRAZOLE
     Indication: Product used for unknown indication

REACTIONS (1)
  - Peripheral vein thrombus extension [Recovered/Resolved]

NARRATIVE: CASE EVENT DATE: 20171208
